FAERS Safety Report 20049433 (Version 1)
Quarter: 2021Q4

REPORT INFORMATION
  Report Type: Spontaneous
  Country: US (occurrence: None)
  Receive Date: 20211109
  Receipt Date: 20211109
  Transmission Date: 20220303
  Serious: Yes (Hospitalization)
  Sender: FDA-Public Use
  Company Number: None

PATIENT
  Sex: Female

DRUGS (1)
  1. METOPROLOL SUCCINATE ER [Suspect]
     Active Substance: METOPROLOL SUCCINATE
     Dates: start: 20210427

REACTIONS (4)
  - Vertigo [None]
  - Fall [None]
  - Headache [None]
  - Head injury [None]

NARRATIVE: CASE EVENT DATE: 20211031
